FAERS Safety Report 24120823 (Version 1)
Quarter: 2024Q3

REPORT INFORMATION
  Report Type: Spontaneous
  Country: US (occurrence: None)
  Receive Date: 20240718
  Receipt Date: 20240718
  Transmission Date: 20241017
  Serious: No
  Sender: Public
  Company Number: None

PATIENT
  Age: 47 Year
  Sex: Female
  Weight: 88.2 kg

DRUGS (3)
  1. DESVENLAFAXINE [Suspect]
     Active Substance: DESVENLAFAXINE
     Indication: Major depression
     Dosage: FREQUENCY : DAILY;?
     Route: 048
  2. Desvenlafaxine ER 50mg 1 QD [Concomitant]
     Dates: start: 20240117, end: 20240718
  3. Desvenlafaxine ER 25mg 1 QD [Concomitant]
     Dates: start: 20240117, end: 20240718

REACTIONS (1)
  - Alopecia [None]

NARRATIVE: CASE EVENT DATE: 20240715
